FAERS Safety Report 22268612 (Version 1)
Quarter: 2023Q2

REPORT INFORMATION
  Report Type: Spontaneous
  Country: US (occurrence: US)
  Receive Date: 20230430
  Receipt Date: 20230430
  Transmission Date: 20230721
  Serious: No
  Sender: FDA-Public Use
  Company Number: US-SA-SAC20230426001627

PATIENT
  Age: 17 Year
  Sex: Male

DRUGS (4)
  1. ALPROLIX [Suspect]
     Active Substance: EFTRENONACOG ALFA
     Indication: Factor IX deficiency
     Dosage: UNK,5700 UNITS (5130-6270), (TWICE WEEKLY DURING BASEBALL SEASON AND AS NEEDED FOR BLEEDING)
     Route: 042
     Dates: start: 202202
  2. ALPROLIX [Suspect]
     Active Substance: EFTRENONACOG ALFA
     Indication: Factor IX deficiency
     Dosage: UNK,5700 UNITS (5130-6270), (TWICE WEEKLY DURING BASEBALL SEASON AND AS NEEDED FOR BLEEDING)
     Route: 042
     Dates: start: 202202
  3. ALPROLIX [Suspect]
     Active Substance: EFTRENONACOG ALFA
     Indication: Haemorrhage
  4. ALPROLIX [Suspect]
     Active Substance: EFTRENONACOG ALFA
     Indication: Haemorrhage

REACTIONS (2)
  - Concussion [Unknown]
  - Joint dislocation [Unknown]
